FAERS Safety Report 5797497-1 (Version None)
Quarter: 2008Q2

REPORT INFORMATION
  Report Type: 
  Country: None (occurrence: None)
  Receive Date: 20080630
  Receipt Date: 20080611
  Transmission Date: 20081010
  Serious: Yes (Hospitalization)
  Sender: FDA-Public Use
  Company Number: 8033749

PATIENT
  Age: 61 Year
  Sex: Female

DRUGS (11)
  1. KEPPRA [Suspect]
     Indication: ESSENTIAL TREMOR
     Dates: start: 20080309, end: 20080309
  2. ATARAX [Suspect]
     Indication: PRURITUS
     Dosage: 25 MG 3/D
     Dates: end: 20080301
  3. LYRICA [Suspect]
     Indication: NEUROPATHY PERIPHERAL
     Dates: start: 20080101
  4. LYRICA [Suspect]
     Indication: NEUROPATHY PERIPHERAL
     Dosage: 100 MG 2/D
     Dates: start: 20080523, end: 20080611
  5. NORVASC [Suspect]
     Dosage: 10 MG /D
     Dates: end: 20080301
  6. ANTIVERT /00042802/ [Suspect]
     Indication: DIZZINESS
     Dates: end: 20080301
  7. DURAGESIC-100 [Suspect]
     Indication: NEUROPATHY PERIPHERAL
  8. DURAGESIC-100 [Suspect]
     Indication: NEUROPATHY PERIPHERAL
     Dosage: 25 MCG
  9. MORPHINE [Suspect]
     Indication: BREAKTHROUGH PAIN
  10. MORPHINE [Suspect]
     Indication: BREAKTHROUGH PAIN
  11. ZANTAC [Concomitant]

REACTIONS (17)
  - ACUTE MYELOID LEUKAEMIA [None]
  - BLAST CELLS ABSENT [None]
  - COMA [None]
  - CYTOGENETIC ABNORMALITY [None]
  - DIZZINESS [None]
  - DRUG HYPERSENSITIVITY [None]
  - DRUG INTERACTION [None]
  - DYSKINESIA [None]
  - ESSENTIAL TREMOR [None]
  - FEAR [None]
  - INFECTION [None]
  - NEUTROPENIA [None]
  - PERICARDIAL EFFUSION [None]
  - PLEURAL EFFUSION [None]
  - RASH ERYTHEMATOUS [None]
  - RASH GENERALISED [None]
  - REACTION TO DRUG EXCIPIENTS [None]
